FAERS Safety Report 10546346 (Version 1)
Quarter: 2014Q4

REPORT INFORMATION
  Report Type: Report from Study
  Country: US (occurrence: US)
  Receive Date: 20141027
  Receipt Date: 20141027
  Transmission Date: 20150529
  Serious: No
  Sender: FDA-Public Use
  Company Number: US-ABBVIE-14P-163-1217392-00

PATIENT
  Age: 22 Year
  Sex: Female
  Weight: 52.21 kg

DRUGS (1)
  1. LUPRON DEPOT [Suspect]
     Active Substance: LEUPROLIDE ACETATE
     Indication: ENDOMETRIOSIS
     Dates: start: 201402

REACTIONS (1)
  - Headache [Unknown]

NARRATIVE: CASE EVENT DATE: 201403
